FAERS Safety Report 15156014 (Version 3)
Quarter: 2019Q1

REPORT INFORMATION
  Report Type: Report from Study
  Country: US (occurrence: US)
  Receive Date: 20180717
  Receipt Date: 20190304
  Transmission Date: 20190417
  Serious: Yes (Other)
  Sender: FDA-Public Use
  Company Number: PHEH2018US028794

PATIENT
  Sex: Male
  Weight: 77.98 kg

DRUGS (2)
  1. COSENTYX [Suspect]
     Active Substance: SECUKINUMAB
     Indication: PSORIASIS
     Dosage: 300 MG, QMO (Q4W)
     Route: 058
     Dates: start: 20150912
  2. ASPIRIN. [Concomitant]
     Active Substance: ASPIRIN
     Indication: PRODUCT USED FOR UNKNOWN INDICATION
     Route: 065

REACTIONS (9)
  - Colitis ulcerative [Recovered/Resolved]
  - Haematochezia [Unknown]
  - Cellulitis [Unknown]
  - Rectal haemorrhage [Unknown]
  - Bowel movement irregularity [Unknown]
  - Diverticulum [Unknown]
  - Large intestinal ulcer [Unknown]
  - Erythema [Unknown]
  - Polyp [Unknown]

NARRATIVE: CASE EVENT DATE: 201805
